FAERS Safety Report 10952203 (Version 1)
Quarter: 2015Q1

REPORT INFORMATION
  Report Type: Spontaneous
  Country: US (occurrence: None)
  Receive Date: 20150226
  Receipt Date: 20150226
  Transmission Date: 20150721
  Serious: Yes (Other)
  Sender: FDA-Public Use
  Company Number: TPA2011A00517

PATIENT
  Age: 50 Year
  Sex: Female
  Weight: 99.79 kg

DRUGS (2)
  1. ACTOS [Suspect]
     Active Substance: PIOGLITAZONE HYDROCHLORIDE
     Indication: TYPE 2 DIABETES MELLITUS
     Route: 048
     Dates: start: 201012, end: 2010
  2. MOTRIN [Concomitant]
     Active Substance: IBUPROFEN

REACTIONS (9)
  - Dyspnoea [None]
  - Oedema peripheral [None]
  - Fatigue [None]
  - Weight increased [None]
  - Chest pain [None]
  - Fluid retention [None]
  - Vision blurred [None]
  - Cardiac failure congestive [None]
  - Hepatic enzyme increased [None]
